FAERS Safety Report 9032542 (Version 1)
Quarter: 2013Q1

REPORT INFORMATION
  Report Type: Spontaneous
  Country: CA (occurrence: None)
  Receive Date: 20130108
  Receipt Date: 20130108
  Transmission Date: 20140127
  Serious: Yes (Hospitalization)
  Sender: FDA-Public Use
  Company Number: 2012AP004433

PATIENT
  Age: 53 Year
  Sex: Female

DRUGS (1)
  1. LITHIUM (LITHIUM) UNKNOWN [Suspect]
     Indication: BIPOLAR DISORDER

REACTIONS (4)
  - Nephrogenic diabetes insipidus [None]
  - Subarachnoid haemorrhage [None]
  - Incoherent [None]
  - Confusional state [None]
